FAERS Safety Report 21474824 (Version 1)
Quarter: 2022Q4

REPORT INFORMATION
  Report Type: Report from Study
  Country: US (occurrence: US)
  Receive Date: 20221018
  Receipt Date: 20221018
  Transmission Date: 20230113
  Serious: No
  Sender: FDA-Public Use
  Company Number: US-ABBVIE-4148007

PATIENT
  Sex: Female

DRUGS (1)
  1. VENCLEXTA [Suspect]
     Active Substance: VENETOCLAX
     Indication: Plasma cell myeloma
     Dosage: TAKE 8 TABLET(S) BY MOUTH EVERY DAY
     Route: 048

REACTIONS (2)
  - Gastric disorder [Recovered/Resolved]
  - Off label use [Unknown]
